FAERS Safety Report 5262293-0 (Version None)
Quarter: 2007Q1

REPORT INFORMATION
  Report Type: 
  Country: None (occurrence: None)
  Receive Date: 20070312
  Receipt Date: 20070305
  Transmission Date: 20070707
  Serious: Yes (Death)
  Sender: FDA-Public Use
  Company Number: US-BAXTER-2007BH002664

PATIENT
  Age: 1 Day
  Sex: Male
  Weight: 3 kg

DRUGS (1)
  1. HEPARIN SODIUM [Suspect]
     Indication: DRUG EXPOSURE DURING PREGNANCY
     Dosage: DOSE UNIT:UNKNOWN
     Route: 064
     Dates: start: 20070130, end: 20070218

REACTIONS (3)
  - CIRCULATORY COLLAPSE [None]
  - DEATH [None]
  - GROUP B STREPTOCOCCUS NEONATAL SEPSIS [None]
